FAERS Safety Report 6457567-1 (Version None)
Quarter: 2009Q4

REPORT INFORMATION
  Report Type: 
  Country: None (occurrence: None)
  Receive Date: 20091125
  Receipt Date: 20091117
  Transmission Date: 20100525
  Serious: Yes (Disabling)
  Sender: FDA-Public Use
  Company Number: PHHY2009JP39805

PATIENT
  Age: 37 Year
  Sex: Male
  Weight: 80 kg

DRUGS (4)
  1. NEORAL [Suspect]
     Indication: PSORIASIS
     Dosage: 500 MG DAILY
     Route: 048
     Dates: start: 20000101, end: 20090911
  2. NEORAL [Suspect]
     Dosage: 200 MG DAILY
     Route: 048
     Dates: start: 20090930, end: 20091109
  3. OXAROL [Concomitant]
     Dosage: 15 G, UNK
     Route: 061
  4. ANTEBATE [Concomitant]
     Dosage: 15 G, UNK
     Route: 061

REACTIONS (3)
  - BLOOD CREATININE INCREASED [None]
  - BLOOD UREA INCREASED [None]
  - TREATMENT NONCOMPLIANCE [None]
